FAERS Safety Report 9442138 (Version 3)
Quarter: 2013Q4

REPORT INFORMATION
  Report Type: Report from Study
  Country: US (occurrence: US)
  Receive Date: 20130806
  Receipt Date: 20131022
  Transmission Date: 20140711
  Serious: Yes (Hospitalization, Other)
  Sender: FDA-Public Use
  Company Number: PHHO2013US009042

PATIENT
  Age: 55 Year
  Sex: Female

DRUGS (1)
  1. PLACEBO [Suspect]
     Indication: PANCREATIC CARCINOMA
     Dosage: UNK
     Route: 058
     Dates: start: 20130703, end: 20130709

REACTIONS (5)
  - Ascites [Unknown]
  - Nausea [Recovered/Resolved]
  - Decreased appetite [Unknown]
  - Amylase increased [Recovered/Resolved]
  - Lipase increased [Recovered/Resolved]
